FAERS Safety Report 8916444 (Version 2)
Quarter: 2012Q4

REPORT INFORMATION
  Report Type: 
  Country: US (occurrence: US)
  Receive Date: 20121120
  Receipt Date: 20121129
  Transmission Date: 20130627
  Serious: Yes (Death, Other)
  Sender: FDA-Public Use
  Company Number: US-PFIZER INC-2012285452

PATIENT
  Age: 78 Year
  Sex: Female

DRUGS (1)
  1. REVATIO [Suspect]
     Indication: CHRONIC PULMONARY HEART DISEASE, UNSPECIFIED
     Dosage: 20 mg, UNK

REACTIONS (3)
  - Disease progression [Fatal]
  - Cor pulmonale chronic [Fatal]
  - Off label use [Unknown]
